FAERS Safety Report 25883583 (Version 1)
Quarter: 2025Q4

REPORT INFORMATION
  Report Type: Spontaneous
  Country: US (occurrence: US)
  Receive Date: 20251006
  Receipt Date: 20251006
  Transmission Date: 20260117
  Serious: Yes (Other)
  Sender: AMGEN
  Company Number: US-AMGEN-USASP2025193879

PATIENT
  Age: 78 Year
  Sex: Female

DRUGS (2)
  1. PROLIA [Suspect]
     Active Substance: DENOSUMAB
     Indication: Osteopenia
     Dosage: UNK UNK, Q6MO
     Route: 065
     Dates: start: 20240823
  2. PROLIA [Suspect]
     Active Substance: DENOSUMAB
     Indication: Arthritis

REACTIONS (17)
  - Thyroid cancer [Unknown]
  - Spinal cord disorder [Unknown]
  - Parathyroid disorder [Unknown]
  - Gait disturbance [Unknown]
  - Dysstasia [Unknown]
  - Mobility decreased [Unknown]
  - Protein total decreased [Unknown]
  - Limb discomfort [Unknown]
  - Hypoaesthesia [Unknown]
  - Asthma [Unknown]
  - Musculoskeletal discomfort [Unknown]
  - Influenza like illness [Unknown]
  - Myalgia [Unknown]
  - Back pain [Unknown]
  - Arthralgia [Unknown]
  - Blood calcium decreased [Unknown]
  - Off label use [Unknown]

NARRATIVE: CASE EVENT DATE: 20240101
